FAERS Safety Report 4767667-X (Version None)
Quarter: 2005Q3

REPORT INFORMATION
  Report Type: 
  Country: None (occurrence: None)
  Receive Date: 20050913
  Receipt Date: 20050829
  Transmission Date: 20060218
  Serious: Yes (Life-Threatening, Hospitalization)
  Sender: FDA-Public Use
  Company Number: FR-AMGEN-UK148611

PATIENT
  Sex: Male
  Weight: 80 kg

DRUGS (3)
  1. KINERET [Suspect]
     Indication: JUVENILE ARTHRITIS
     Route: 058
     Dates: start: 20050710, end: 20050720
  2. CORTANCYL [Concomitant]
     Route: 048
     Dates: start: 19980101
  3. METHOTREXATE [Concomitant]
     Route: 048
     Dates: start: 20030101

REACTIONS (10)
  - ACUTE PULMONARY OEDEMA [None]
  - ACUTE RESPIRATORY DISTRESS SYNDROME [None]
  - ANAPHYLACTIC SHOCK [None]
  - CARDIAC FAILURE [None]
  - COMA [None]
  - EXTREMITY NECROSIS [None]
  - GENERAL PHYSICAL HEALTH DETERIORATION [None]
  - HYPERSENSITIVITY [None]
  - VASOCONSTRICTION [None]
  - VOMITING [None]
